FAERS Safety Report 5387217-7 (Version None)
Quarter: 2007Q3

REPORT INFORMATION
  Report Type: 
  Country: None (occurrence: None)
  Receive Date: 20070714
  Receipt Date: 20070705
  Transmission Date: 20080115
  Serious: Yes (Death, Life-Threatening)
  Sender: FDA-Public Use
  Company Number: CN-BRACCO-BRO-011822

PATIENT
  Age: 77 Year
  Sex: Female

DRUGS (3)
  1. IOPAMIDOL [Suspect]
     Dosage: ADMINISTERED AT 25 ML/SEC
     Route: 042
     Dates: start: 20070615, end: 20070615
  2. IOPAMIDOL [Suspect]
     Dosage: ADMINISTERED AT 25 ML/SEC
     Route: 042
     Dates: start: 20070615, end: 20070615
  3. DEXAMETHASONE 0.5MG TAB [Interacting]
     Route: 042
     Dates: start: 20070615, end: 20070615

REACTIONS (10)
  - BLOOD PRESSURE DECREASED [None]
  - COUGH [None]
  - CYANOSIS [None]
  - LISTLESS [None]
  - PALLOR [None]
  - PULSE PRESSURE DECREASED [None]
  - RASH GENERALISED [None]
  - RESPIRATORY ARREST [None]
  - TACHYPNOEA [None]
  - URINARY INCONTINENCE [None]
